FAERS Safety Report 5835905-8 (Version None)
Quarter: 2008Q3

REPORT INFORMATION
  Report Type: 
  Country: None (occurrence: None)
  Receive Date: 20080806
  Receipt Date: 20080728
  Transmission Date: 20090109
  Serious: Yes (Hospitalization, Other)
  Sender: FDA-Public Use
  Company Number: DE-PFIZER INC-2008050833

PATIENT
  Age: 87 Year
  Sex: Male
  Weight: 66 kg

DRUGS (6)
  1. LYRICA [Suspect]
     Dosage: DAILY DOSE:150MG
     Route: 048
  2. DURAGESIC-100 [Interacting]
     Route: 061
  3. SEROQUEL [Interacting]
     Dosage: DAILY DOSE:75MG
     Route: 048
  4. CYMBALTA [Interacting]
     Dosage: DAILY DOSE:30MG
     Route: 048
     Dates: start: 20080501, end: 20080506
  5. TAMSULOSIN HCL [Concomitant]
     Route: 048
  6. ACTRAPHANE HM [Concomitant]
     Route: 058

REACTIONS (6)
  - DEPRESSION [None]
  - DRUG INTERACTION [None]
  - DYSPHAGIA [None]
  - MUSCLE RIGIDITY [None]
  - PARKINSONISM [None]
  - URINARY TRACT INFECTION [None]
